FAERS Safety Report 12725426 (Version 8)
Quarter: 2017Q1

REPORT INFORMATION
  Report Type: Report from Study
  Country: JP (occurrence: JP)
  Receive Date: 20160908
  Receipt Date: 20170327
  Transmission Date: 20170428
  Serious: Yes (Hospitalization)
  Sender: FDA-Public Use
  Company Number: JP-PFIZER INC-2016411182

PATIENT
  Age: 79 Year
  Sex: Male
  Weight: 55 kg

DRUGS (10)
  1. BROMFENAC [Concomitant]
     Active Substance: BROMFENAC SODIUM
     Indication: CATARACT
     Dosage: 2 GTT, AS NEEDED
     Route: 047
     Dates: start: 20160112
  2. XELJANZ [Suspect]
     Active Substance: TOFACITINIB CITRATE
     Indication: RHEUMATOID ARTHRITIS
     Dosage: 5 MG, 2X/DAY
     Route: 048
     Dates: start: 20160405, end: 20160531
  3. FOLIAMIN [Concomitant]
     Active Substance: FOLIC ACID
     Indication: RHEUMATOID ARTHRITIS
     Dosage: 5 MG, WEEKLY
     Route: 048
     Dates: start: 20140414, end: 20160527
  4. FOLIAMIN [Concomitant]
     Active Substance: FOLIC ACID
     Dosage: 5 MG, WEEKLY
     Route: 048
     Dates: start: 20160701
  5. RHEUMATREX [Suspect]
     Active Substance: METHOTREXATE SODIUM
     Indication: RHEUMATOID ARTHRITIS
     Dosage: 12 MG, WEEKLY
     Route: 048
     Dates: start: 20140724, end: 20160526
  6. ISONIAZIDE [Concomitant]
     Active Substance: ISONIAZID
     Indication: LATENT TUBERCULOSIS
     Dosage: 300 MG, DAILY
     Route: 048
     Dates: start: 20151219
  7. CELECOXIB. [Concomitant]
     Active Substance: CELECOXIB
     Indication: RHEUMATOID ARTHRITIS
     Dosage: 200 MG, DAILY
     Route: 048
     Dates: start: 20140225
  8. KETOPROFEN. [Concomitant]
     Active Substance: KETOPROFEN
     Indication: RHEUMATOID ARTHRITIS
     Dosage: 200 MG, AS NEEDED
     Route: 061
     Dates: start: 20160405
  9. NIZATIDINE. [Concomitant]
     Active Substance: NIZATIDINE
     Indication: PROPHYLAXIS AGAINST GASTROINTESTINAL ULCER
     Dosage: 300 MG, DAILY
     Route: 048
     Dates: start: 20140225
  10. VEMAS [Concomitant]
     Active Substance: CASANTHRANOL\DOCUSATE SODIUM
     Indication: CONSTIPATION
     Dosage: 9 DF, AS NEEDED
     Route: 048
     Dates: start: 20150218

REACTIONS (2)
  - Bursitis infective [Recovered/Resolved]
  - Infective tenosynovitis [Recovered/Resolved]

NARRATIVE: CASE EVENT DATE: 20160524
